FAERS Safety Report 16751414 (Version 1)
Quarter: 2019Q3

REPORT INFORMATION
  Report Type: Spontaneous
  Country: US (occurrence: US)
  Receive Date: 20190828
  Receipt Date: 20190828
  Transmission Date: 20191005
  Serious: No
  Sender: FDA-Public Use
  Company Number: US-JNJFOC-20190832488

PATIENT
  Age: 99 Year
  Sex: Male

DRUGS (2)
  1. DURAGESIC [Suspect]
     Active Substance: FENTANYL
     Indication: PRODUCT USED FOR UNKNOWN INDICATION
     Route: 062
  2. XTANDI [Suspect]
     Active Substance: ENZALUTAMIDE
     Indication: PROSTATE CANCER
     Route: 048
     Dates: start: 20190718

REACTIONS (11)
  - Dysgeusia [Unknown]
  - Muscular weakness [Unknown]
  - Nausea [Unknown]
  - Muscle twitching [Unknown]
  - Decreased appetite [Unknown]
  - Dry skin [Unknown]
  - Fatigue [Unknown]
  - Weight decreased [Unknown]
  - Hypotension [Unknown]
  - Peripheral swelling [Unknown]
  - Myalgia [Unknown]

NARRATIVE: CASE EVENT DATE: 201907
